FAERS Safety Report 6019134-3 (Version None)
Quarter: 2008Q4

REPORT INFORMATION
  Report Type: 
  Country: None (occurrence: None)
  Receive Date: 20081224
  Receipt Date: 20081218
  Transmission Date: 20090506
  Serious: Yes (Other)
  Sender: FDA-Public Use
  Company Number: JP-JNJFOC-20081205383

PATIENT
  Age: 45 Year
  Sex: Male

DRUGS (6)
  1. ITRIZOLE [Suspect]
     Route: 041
  2. ITRIZOLE [Suspect]
     Indication: FUNGAL INFECTION
     Route: 041
  3. VANCOMYCIN [Suspect]
     Indication: INFECTION
     Route: 042
  4. FLUCONAZOLE [Concomitant]
     Indication: C-REACTIVE PROTEIN INCREASED
  5. FLUCONAZOLE [Concomitant]
     Indication: PYREXIA
  6. MEROPEN [Concomitant]
     Indication: INFECTION
     Route: 042

REACTIONS (1)
  - RENAL DISORDER [None]
